FAERS Safety Report 25273459 (Version 1)
Quarter: 2025Q2

REPORT INFORMATION
  Report Type: Spontaneous
  Country: US (occurrence: None)
  Receive Date: 20250505
  Receipt Date: 20250505
  Transmission Date: 20250716
  Serious: No
  Sender: FDA-CTU
  Company Number: None

PATIENT
  Age: 69 Year
  Sex: Male
  Weight: 83.025 kg

DRUGS (1)
  1. LEVETIRACETAM [Suspect]
     Active Substance: LEVETIRACETAM
     Indication: Seizure
     Dosage: 60 TABLET(S) TWICE A DAY ORAL ?
     Route: 048
     Dates: start: 20250327, end: 20250505

REACTIONS (6)
  - Diarrhoea [None]
  - Abdominal pain lower [None]
  - Back pain [None]
  - Dry throat [None]
  - Paranasal sinus hyposecretion [None]
  - Fatigue [None]

NARRATIVE: CASE EVENT DATE: 20250501
